FAERS Safety Report 9207709 (Version 1)
Quarter: 2013Q1

REPORT INFORMATION
  Report Type: Spontaneous
  Country: US (occurrence: None)
  Receive Date: 20120809
  Receipt Date: 20120809
  Transmission Date: 20140127
  Serious: Yes (Other)
  Sender: FDA-Public Use
  Company Number: 2012US000044

PATIENT
  Age: 83 Year
  Sex: Female

DRUGS (1)
  1. VESICARE (SOLIFENACIN) TABLET [Suspect]
     Indication: PRODUCT USED FOR UNKNOWN INDICATION
     Route: 048

REACTIONS (6)
  - Swollen tongue [None]
  - Speech disorder [None]
  - Asthenia [None]
  - Dry mouth [None]
  - Headache [None]
  - Vision blurred [None]
